FAERS Safety Report 11109670 (Version 1)
Quarter: 2015Q2

REPORT INFORMATION
  Report Type: Report from Study
  Country: NL (occurrence: NL)
  Receive Date: 20150513
  Receipt Date: 20150513
  Transmission Date: 20150821
  Serious: Yes (Other)
  Sender: FDA-Public Use
  Company Number: NL-ABBVIE-15P-114-1388595-00

PATIENT
  Sex: Female

DRUGS (1)
  1. DUODOPA [Suspect]
     Active Substance: CARBIDOPA\LEVODOPA
     Indication: PARKINSON^S DISEASE
     Dosage: 20/5MG/ML, MD: 9.3, CD: 2.7, ED: 1
     Route: 050
     Dates: start: 20130121

REACTIONS (3)
  - Pain [Not Recovered/Not Resolved]
  - Spinal fracture [Not Recovered/Not Resolved]
  - Fall [Recovered/Resolved]
